FAERS Safety Report 25577043 (Version 2)
Quarter: 2025Q3

REPORT INFORMATION
  Report Type: Spontaneous
  Country: EU (occurrence: EU)
  Receive Date: 20250718
  Receipt Date: 20250721
  Transmission Date: 20251021
  Serious: Yes (Other)
  Sender: AUROBINDO
  Company Number: EU-002147023-NVSC2025FR106875

PATIENT
  Age: 49 Year
  Sex: Female

DRUGS (13)
  1. CARBOPLATIN [Suspect]
     Active Substance: CARBOPLATIN
     Indication: HER2 negative breast cancer
     Route: 065
  2. EVEROLIMUS [Suspect]
     Active Substance: EVEROLIMUS
     Indication: HER2 negative breast cancer
     Route: 065
     Dates: end: 201804
  3. EXEMESTANE [Suspect]
     Active Substance: EXEMESTANE
     Indication: HER2 negative breast cancer
     Route: 065
     Dates: end: 201804
  4. FULVESTRANT [Suspect]
     Active Substance: FULVESTRANT
     Indication: HER2 negative breast cancer
     Route: 065
  5. PACLITAXEL [Suspect]
     Active Substance: PACLITAXEL
     Indication: HER2 negative breast cancer
     Route: 065
  6. HALAVEN [Suspect]
     Active Substance: ERIBULIN MESYLATE
     Indication: HER2 negative breast cancer
     Route: 065
  7. PALBOCICLIB [Suspect]
     Active Substance: PALBOCICLIB
     Indication: HER2 negative breast cancer
     Route: 065
  8. OLAPARIB [Suspect]
     Active Substance: OLAPARIB
     Indication: HER2 negative breast cancer
     Dosage: 600 MILLIGRAM, ONCE A DAY
     Route: 065
  9. HERCEPTIN [Suspect]
     Active Substance: TRASTUZUMAB
     Indication: HER2 negative breast cancer
     Route: 065
  10. CISPLATIN [Suspect]
     Active Substance: CISPLATIN
     Indication: HER2 negative breast cancer
     Route: 065
  11. ONDANSETRON [Concomitant]
     Active Substance: ONDANSETRON
     Indication: Chemotherapy side effect prophylaxis
     Route: 065
  12. METOCLOPRAMIDE [Concomitant]
     Active Substance: METOCLOPRAMIDE
     Indication: Chemotherapy side effect prophylaxis
     Route: 065
  13. PREDNISOLONE [Concomitant]
     Active Substance: PREDNISOLONE
     Indication: Chemotherapy side effect prophylaxis
     Route: 065

REACTIONS (4)
  - Drug ineffective [Unknown]
  - Type IV hypersensitivity reaction [Unknown]
  - Palmar-plantar erythrodysaesthesia syndrome [Unknown]
  - Cross sensitivity reaction [Unknown]
